FAERS Safety Report 18705673 (Version 1)
Quarter: 2021Q1

REPORT INFORMATION
  Report Type: Spontaneous
  Country: US (occurrence: US)
  Receive Date: 20210106
  Receipt Date: 20210106
  Transmission Date: 20210419
  Serious: No
  Sender: FDA-Public Use
  Company Number: US-AMGEN-USASP2020210797

PATIENT
  Age: 46 Year
  Sex: Male

DRUGS (2)
  1. AVSOLA [Suspect]
     Active Substance: INFLIXIMAB-AXXQ
     Dosage: 10 MILLIGRAM/KILOGRAM, Q8WK
     Route: 065
  2. AVSOLA [Suspect]
     Active Substance: INFLIXIMAB-AXXQ
     Indication: AUTOIMMUNE ENTEROPATHY
     Dosage: 10 MILLIGRAM/KILOGRAM AT WEEKS 0, 2, AND 6
     Route: 065

REACTIONS (1)
  - Off label use [Unknown]
